FAERS Safety Report 8560786 (Version 3)
Quarter: 2014Q2

REPORT INFORMATION
  Report Type: Report from Study
  Country: US (occurrence: US)
  Receive Date: 20120514
  Receipt Date: 20140423
  Transmission Date: 20141212
  Serious: Yes (Other)
  Sender: FDA-Public Use
  Company Number: US-ALEXION-A201100481

PATIENT
  Age: 23 Year
  Sex: Female

DRUGS (11)
  1. SOLIRIS [Suspect]
     Indication: PAROXYSMAL NOCTURNAL HAEMOGLOBINURIA
     Dosage: 200 MG, UNK
     Route: 042
  2. SOLIRIS [Suspect]
     Dosage: 900 MG, Q2W
     Route: 042
     Dates: start: 20120412
  3. SOLIRIS [Suspect]
     Dosage: 900 MG, QW
     Route: 042
     Dates: start: 201011
  4. ANTIDEPRESSANTS [Concomitant]
     Indication: DEPRESSION
     Dosage: UNK
     Route: 065
  5. LOVENOX [Concomitant]
     Indication: TREATMENT NONCOMPLIANCE
     Dosage: UNK
     Route: 065
  6. SERTRALINE [Concomitant]
     Indication: PRODUCT USED FOR UNKNOWN INDICATION
     Dosage: 50 MG UNK
     Route: 065
  7. CARAFATE [Concomitant]
     Indication: PRODUCT USED FOR UNKNOWN INDICATION
     Dosage: UNK
     Route: 065
  8. LORAZEPAM [Concomitant]
     Indication: PRODUCT USED FOR UNKNOWN INDICATION
     Dosage: UNK
     Route: 065
  9. AMBIEN [Concomitant]
     Indication: PRODUCT USED FOR UNKNOWN INDICATION
     Dosage: UNK
     Route: 065
  10. MELOXICAM [Concomitant]
     Indication: PRODUCT USED FOR UNKNOWN INDICATION
     Dosage: UNK
     Route: 065
  11. DANAZOL [Concomitant]
     Indication: PRODUCT USED FOR UNKNOWN INDICATION
     Dosage: UNK
     Route: 065

REACTIONS (19)
  - Breast operation [Recovered/Resolved]
  - Suicidal ideation [Recovered/Resolved]
  - Loss of consciousness [Recovered/Resolved]
  - Mammoplasty [Recovered/Resolved]
  - Platelet count decreased [Unknown]
  - Haemoglobin decreased [Recovered/Resolved]
  - Road traffic accident [Recovered/Resolved]
  - Feeling abnormal [Not Recovered/Not Resolved]
  - Frustration [Not Recovered/Not Resolved]
  - Mental disorder [Unknown]
  - Depression [Not Recovered/Not Resolved]
  - Condition aggravated [Not Recovered/Not Resolved]
  - Anxiety [Not Recovered/Not Resolved]
  - Nausea [Not Recovered/Not Resolved]
  - Vomiting [Not Recovered/Not Resolved]
  - Diarrhoea [Unknown]
  - White blood cell count decreased [Recovering/Resolving]
  - Pain [Not Recovered/Not Resolved]
  - Haematocrit decreased [Recovering/Resolving]
